FAERS Safety Report 7443065-5 (Version None)
Quarter: 2011Q2

REPORT INFORMATION
  Report Type: 
  Country: None (occurrence: None)
  Receive Date: 20110420
  Receipt Date: 20110407
  Transmission Date: 20111010
  Serious: Yes (Other)
  Sender: FDA-Public Use
  Company Number: ALA_00941_2010

PATIENT
  Sex: Female

DRUGS (1)
  1. METOCLOPRAMIDE [Suspect]
     Indication: PRODUCT USED FOR UNKNOWN INDICATION
     Dosage: (DF ORAL)
     Route: 048
     Dates: start: 20000401, end: 20100301

REACTIONS (10)
  - EMOTIONAL DISORDER [None]
  - INCORRECT DRUG ADMINISTRATION DURATION [None]
  - AKATHISIA [None]
  - EXTRAPYRAMIDAL DISORDER [None]
  - DYSKINESIA [None]
  - ECONOMIC PROBLEM [None]
  - TREMOR [None]
  - UNEVALUABLE EVENT [None]
  - TARDIVE DYSKINESIA [None]
  - CONDITION AGGRAVATED [None]
